FAERS Safety Report 8348450-5 (Version None)
Quarter: 2012Q2

REPORT INFORMATION
  Report Type: 
  Country: None (occurrence: None)
  Receive Date: 20120509
  Receipt Date: 20120426
  Transmission Date: 20120825
  Serious: Yes (Other)
  Sender: FDA-Public Use
  Company Number: CHPA2012US010003

PATIENT
  Age: 44 Year
  Sex: Female

DRUGS (4)
  1. VITAMIN D [Concomitant]
  2. VITAMIN C [Concomitant]
  3. EXCEDRIN EXTRA STRENGTH TABLETS [Suspect]
     Indication: HEADACHE
     Dosage: UNK, COUPLE OF TIMES A DAY
     Route: 048
     Dates: start: 19920101
  4. MULTI-VITAMINS [Concomitant]

REACTIONS (4)
  - HYPERTENSION [None]
  - DYSPEPSIA [None]
  - NECK PAIN [None]
  - JOINT INJURY [None]
